FAERS Safety Report 15519735 (Version 1)
Quarter: 2018Q4

REPORT INFORMATION
  Report Type: Report from Study
  Country: US (occurrence: US)
  Receive Date: 20181017
  Receipt Date: 20181017
  Transmission Date: 20190205
  Serious: No
  Sender: FDA-Public Use
  Company Number: US-AMGEN-USASL2018106844

PATIENT
  Age: 84 Year
  Sex: Female

DRUGS (2)
  1. FENOFIBRATE. [Concomitant]
     Active Substance: FENOFIBRATE
     Dosage: UNK
  2. REPATHA [Suspect]
     Active Substance: EVOLOCUMAB
     Indication: HYPERCHOLESTEROLAEMIA
     Dosage: 140 MG, Q2WK
     Route: 065

REACTIONS (6)
  - Rhinorrhoea [Unknown]
  - Asthenia [Unknown]
  - Myalgia [Unknown]
  - Influenza like illness [Unknown]
  - Back pain [Unknown]
  - Pain in extremity [Unknown]
